FAERS Safety Report 9458457 (Version 1)
Quarter: 2013Q3

REPORT INFORMATION
  Report Type: Spontaneous
  Country: GB (occurrence: None)
  Receive Date: 20130812
  Receipt Date: 20130812
  Transmission Date: 20140515
  Serious: Yes (Hospitalization)
  Sender: FDA-Public Use
  Company Number: 1830537

PATIENT
  Age: 35 Year
  Sex: 0

DRUGS (5)
  1. GENTAMICIN SULFATE [Suspect]
     Indication: PYREXIA
     Dates: start: 20110823
  2. CASPOFUNGIN [Suspect]
     Indication: ORAL CANDIDIASIS
     Dates: start: 20110822
  3. PIPERACILLIN/TAZOBACTAM [Suspect]
     Indication: PYREXIA
     Dates: start: 20110823
  4. TEICOPLANIN [Suspect]
     Indication: ENTEROCOCCAL INFECTION
     Dates: start: 20110824, end: 20110902
  5. CIPROFLOXACIN [Concomitant]

REACTIONS (4)
  - Clostridium test positive [None]
  - Malaise [None]
  - Diarrhoea [None]
  - Nausea [None]
